FAERS Safety Report 10159562 (Version 1)
Quarter: 2014Q2

REPORT INFORMATION
  Report Type: Spontaneous
  Country: US (occurrence: FR)
  Receive Date: 20140508
  Receipt Date: 20140508
  Transmission Date: 20141212
  Serious: Yes (Hospitalization)
  Sender: FDA-Public Use
  Company Number: 2014SP002495

PATIENT
  Age: 73 Year
  Sex: Male
  Weight: 83 kg

DRUGS (8)
  1. FLUOROURACIL [Suspect]
     Indication: RECTAL CANCER
     Route: 042
     Dates: start: 20140220
  2. FOLINIC ACID [Suspect]
     Indication: RECTAL CANCER
     Route: 042
     Dates: start: 20140220
  3. IRINOTECAN HYDROCHLORIDE [Suspect]
     Indication: RECTAL CANCER
     Route: 042
     Dates: start: 20140220
  4. ONDANSETRON HYDROCHLORIDE [Suspect]
     Indication: PRODUCT USED FOR UNKNOWN INDICATION
     Route: 042
     Dates: start: 20140220
  5. AFLIBERCEPT [Suspect]
     Indication: RECTAL CANCER
     Route: 042
     Dates: start: 20140220
  6. ATROPINE [Suspect]
     Indication: CHOLINERGIC SYNDROME
     Route: 058
     Dates: start: 20140220
  7. METFORMIN EMBONATE [Concomitant]
     Indication: DIABETES MELLITUS
     Route: 048
  8. FENOFIBRATE [Concomitant]
     Indication: DYSLIPIDAEMIA
     Route: 048

REACTIONS (4)
  - Hypertension [Recovering/Resolving]
  - Dyspnoea [Recovering/Resolving]
  - Proteinuria [Recovering/Resolving]
  - Dysphonia [Unknown]
